FAERS Safety Report 5959139-1 (Version None)
Quarter: 2008Q4

REPORT INFORMATION
  Report Type: 
  Country: None (occurrence: None)
  Receive Date: 20081120
  Receipt Date: 20080222
  Transmission Date: 20090506
  Serious: No
  Sender: FDA-Public Use
  Company Number: A0711365A

PATIENT
  Age: 45 Year
  Sex: Male

DRUGS (2)
  1. BUPROPION HYDROCHLORIDE [Suspect]
     Indication: DEPRESSION
     Dosage: 350MG TWICE PER DAY
     Route: 048
     Dates: start: 20070201
  2. METHYLIN SR [Concomitant]

REACTIONS (1)
  - DYSPHONIA [None]
